FAERS Safety Report 6733520-5 (Version None)
Quarter: 2010Q2

REPORT INFORMATION
  Report Type: 
  Country: None (occurrence: None)
  Receive Date: 20100520
  Receipt Date: 20100421
  Transmission Date: 20101027
  Serious: No
  Sender: FDA-Public Use
  Company Number: US-BAYER-201014474BCC

PATIENT
  Age: 90 Year
  Sex: Female
  Weight: 59 kg

DRUGS (11)
  1. ALEVE [Suspect]
     Indication: ARTHRALGIA
     Dosage: TOTAL DAILY DOSE: 220 MG  UNIT DOSE: 220 MG
     Route: 048
     Dates: start: 20100412, end: 20100412
  2. ALEVE [Suspect]
     Dosage: TOTAL DAILY DOSE: 440 MG  UNIT DOSE: 220 MG
     Route: 048
     Dates: start: 20100413
  3. ASPIRIN [Concomitant]
     Route: 065
     Dates: end: 20100412
  4. LIPITOR [Concomitant]
     Route: 065
  5. AVAPRO [Concomitant]
     Route: 065
  6. BONIVA [Concomitant]
     Route: 065
  7. CALTRATE [Concomitant]
     Route: 065
  8. VITAMIN C [Concomitant]
     Route: 065
  9. HEPPRIX [Concomitant]
     Route: 065
  10. BONIVA [Concomitant]
     Route: 065
  11. OSCAL [Concomitant]
     Route: 065

REACTIONS (6)
  - BLOOD PRESSURE INCREASED [None]
  - DIZZINESS [None]
  - ERYTHEMA [None]
  - HYPERSENSITIVITY [None]
  - OCULAR HYPERAEMIA [None]
  - SWELLING FACE [None]
